FAERS Safety Report 10382934 (Version 1)
Quarter: 2014Q3

REPORT INFORMATION
  Report Type: Spontaneous
  Country: US (occurrence: US)
  Receive Date: 20140813
  Receipt Date: 20140813
  Transmission Date: 20150326
  Serious: No
  Sender: FDA-Public Use
  Company Number: US-SA-2014SA044296

PATIENT
  Age: 65 Year
  Sex: Female
  Weight: 72.6 kg

DRUGS (24)
  1. FABRAZYME [Suspect]
     Active Substance: AGALSIDASE BETA
     Indication: FABRY^S DISEASE
     Dosage: DOSE  : 75 MG Q2W
     Route: 042
     Dates: start: 20120511
  2. ISOSORBIDE [Concomitant]
     Active Substance: ISOSORBIDE
  3. AMLODIPINE [Concomitant]
     Active Substance: AMLODIPINE BESYLATE
  4. OXYCODONE [Concomitant]
     Active Substance: OXYCODONE
  5. MULTIVITAMINS [Concomitant]
     Active Substance: VITAMINS
  6. DIPHENHYDRAMINE [Concomitant]
     Active Substance: DIPHENHYDRAMINE
  7. HEPARIN [Concomitant]
     Active Substance: HEPARIN SODIUM
  8. SALINE [Concomitant]
     Active Substance: SODIUM CHLORIDE
  9. PRAVASTATIN [Concomitant]
     Active Substance: PRAVASTATIN\PRAVASTATIN SODIUM
  10. SOLU-MEDROL [Concomitant]
     Active Substance: METHYLPREDNISOLONE SODIUM SUCCINATE
  11. COENZYME Q10 [Concomitant]
     Active Substance: UBIDECARENONE
  12. METOPROLOL [Concomitant]
     Active Substance: METOPROLOL
  13. ALPRAZOLAM. [Concomitant]
     Active Substance: ALPRAZOLAM
  14. FABRAZYME [Suspect]
     Active Substance: AGALSIDASE BETA
     Indication: FABRY^S DISEASE
     Dosage: DOSE  : 75 MG Q2W
     Route: 042
     Dates: start: 20120511
  15. LIDOCAINE. [Concomitant]
     Active Substance: LIDOCAINE
  16. JANUVIA [Concomitant]
     Active Substance: SITAGLIPTIN PHOSPHATE
  17. ZINC [Concomitant]
     Active Substance: ZINC\ZINC CHLORIDE
  18. WARFARIN [Concomitant]
     Active Substance: WARFARIN
  19. VITAMIN B12 [Concomitant]
     Active Substance: CYANOCOBALAMIN
  20. LOSARTAN [Concomitant]
     Active Substance: LOSARTAN
  21. BUPROPION [Concomitant]
     Active Substance: BUPROPION
  22. SODIUM CHLORIDE. [Concomitant]
     Active Substance: SODIUM CHLORIDE
  23. EPIPEN [Concomitant]
     Active Substance: EPINEPHRINE
  24. VITAMIN D [Concomitant]
     Active Substance: CHOLECALCIFEROL

REACTIONS (1)
  - Ear infection [Unknown]
